FAERS Safety Report 23003945 (Version 3)
Quarter: 2024Q1

REPORT INFORMATION
  Report Type: Spontaneous
  Country: CA (occurrence: CA)
  Receive Date: 20230928
  Receipt Date: 20240212
  Transmission Date: 20240409
  Serious: Yes (Other)
  Sender: FDA-Public Use
  Company Number: CA-JNJFOC-20230949532

PATIENT
  Age: 28 Year
  Sex: Female

DRUGS (6)
  1. RISPERDAL [Suspect]
     Active Substance: RISPERIDONE
     Indication: Abnormal behaviour
     Route: 065
  2. RISPERDAL [Suspect]
     Active Substance: RISPERIDONE
     Indication: Obsessive-compulsive disorder
  3. RISPERDAL [Suspect]
     Active Substance: RISPERIDONE
     Indication: Intellectual disability
  4. RISPERDAL [Suspect]
     Active Substance: RISPERIDONE
     Indication: Autism spectrum disorder
  5. METFORMIN [Suspect]
     Active Substance: METFORMIN HYDROCHLORIDE
     Indication: Metabolic disorder
     Route: 065
  6. METFORMIN [Suspect]
     Active Substance: METFORMIN HYDROCHLORIDE
     Indication: Weight decreased
     Route: 065

REACTIONS (8)
  - Metabolic syndrome [Recovered/Resolved]
  - Central obesity [Recovered/Resolved]
  - Abdominal discomfort [Recovered/Resolved]
  - Weight increased [Recovered/Resolved]
  - Blood glucose increased [Recovered/Resolved]
  - Blood triglycerides increased [Recovered/Resolved]
  - Emotional distress [Recovered/Resolved]
  - Therapeutic response decreased [Recovered/Resolved]
